FAERS Safety Report 6823583-0 (Version None)
Quarter: 2010Q3

REPORT INFORMATION
  Report Type: 
  Country: None (occurrence: None)
  Receive Date: 20100708
  Receipt Date: 20060815
  Transmission Date: 20110219
  Serious: No
  Sender: FDA-Public Use
  Company Number: US-PFIZER INC-2006102354

PATIENT
  Sex: Female
  Weight: 54.43 kg

DRUGS (2)
  1. CHANTIX [Suspect]
     Indication: EX-TOBACCO USER
     Dates: start: 20060731
  2. PRILOSEC [Concomitant]

REACTIONS (2)
  - FLATULENCE [None]
  - NAUSEA [None]
